FAERS Safety Report 7620852-1 (Version None)
Quarter: 2011Q3

REPORT INFORMATION
  Report Type: 
  Country: None (occurrence: None)
  Receive Date: 20110719
  Receipt Date: 20110715
  Transmission Date: 20111222
  Serious: Yes (Death, Hospitalization)
  Sender: FDA-Public Use
  Company Number: US-ASTRAZENECA-2011SE42404

PATIENT
  Age: 882 Month
  Sex: Female
  Weight: 77.6 kg

DRUGS (2)
  1. DOCETAXEL [Suspect]
     Indication: OVARIAN EPITHELIAL CANCER
     Route: 042
     Dates: start: 20110627
  2. VANDETANIB [Suspect]
     Indication: OVARIAN EPITHELIAL CANCER
     Route: 048
     Dates: start: 20110627

REACTIONS (10)
  - DECREASED APPETITE [None]
  - PAIN [None]
  - NAUSEA [None]
  - WHITE BLOOD CELL COUNT DECREASED [None]
  - HYPERGLYCAEMIA [None]
  - VOMITING [None]
  - SUDDEN DEATH [None]
  - HYPOALBUMINAEMIA [None]
  - ABDOMINAL DISTENSION [None]
  - HYPOCALCAEMIA [None]
